FAERS Safety Report 23558342 (Version 2)
Quarter: 2024Q1

REPORT INFORMATION
  Report Type: Spontaneous
  Country: US (occurrence: US)
  Receive Date: 20240223
  Receipt Date: 20240321
  Transmission Date: 20240409
  Serious: Yes (Hospitalization, Other)
  Sender: FDA-Public Use
  Company Number: US-INCYTE CORPORATION-2024IN001868

PATIENT
  Age: 18 Year
  Sex: Male

DRUGS (5)
  1. JAKAFI [Suspect]
     Active Substance: RUXOLITINIB
     Indication: B-cell type acute leukaemia
     Dosage: 120 MG, QD (EVERY 24 HOURS)
     Route: 048
     Dates: start: 20231122, end: 20231207
  2. JAKAFI [Suspect]
     Active Substance: RUXOLITINIB
     Dosage: 120 MG, QD (EVERY 24 HOURS)
     Route: 048
     Dates: start: 20240228
  3. CYCLOPHOSPHAMIDE [Suspect]
     Active Substance: CYCLOPHOSPHAMIDE
     Indication: B-cell type acute leukaemia
     Dosage: UNK
     Route: 065
  4. KYMRIAH [Suspect]
     Active Substance: TISAGENLECLEUCEL
     Indication: B-cell type acute leukaemia
     Dosage: UNK, ONCE/SINGLE
     Route: 042
     Dates: start: 20231215, end: 20231215
  5. FLUDARABINE [Suspect]
     Active Substance: FLUDARABINE PHOSPHATE
     Indication: B-cell type acute leukaemia
     Dosage: UNK
     Route: 065

REACTIONS (7)
  - Wound infection pseudomonas [Recovered/Resolved]
  - Influenza [Recovered/Resolved]
  - B-cell type acute leukaemia [Unknown]
  - Disease recurrence [Unknown]
  - Immunodeficiency [Unknown]
  - Prescribed overdose [Unknown]
  - Off label use [Unknown]
